FAERS Safety Report 8173652-0 (Version None)
Quarter: 2012Q1

REPORT INFORMATION
  Report Type: 
  Country: None (occurrence: None)
  Receive Date: 20120224
  Receipt Date: 20120209
  Transmission Date: 20120608
  Serious: Yes (Death)
  Sender: FDA-Public Use
  Company Number: 2012SGN00057

PATIENT

DRUGS (1)
  1. ADCETRIS [Suspect]

REACTIONS (2)
  - GRAFT VERSUS HOST DISEASE [None]
  - ACUTE HEPATIC FAILURE [None]
